FAERS Safety Report 4279837-8 (Version None)
Quarter: 2004Q1

REPORT INFORMATION
  Report Type: 
  Country: None (occurrence: None)
  Receive Date: 20040122
  Receipt Date: 20040113
  Transmission Date: 20041129
  Serious: Yes (Death, Life-Threatening)
  Sender: FDA-Public Use
  Company Number: 200410092DE

PATIENT
  Age: 75 Year
  Sex: Female
  Weight: 75 kg

DRUGS (30)
  1. NOVALGIN DROPS [Suspect]
     Indication: PAIN
     Dosage: 20 DROP QD PO
     Route: 048
     Dates: start: 20020409, end: 20020412
  2. LASIX [Suspect]
     Indication: POLYURIA
     Dosage: IV
     Route: 042
     Dates: start: 20020317, end: 20020319
  3. LASIX [Suspect]
     Indication: POLYURIA
     Dosage: IV
     Route: 042
     Dates: start: 20020324, end: 20020326
  4. NITRAZEPAM TABLETS [Suspect]
     Indication: SLEEP DISORDER
     Dosage: PO
     Route: 048
     Dates: start: 20020317, end: 20020317
  5. NITRAZEPAM TABLETS [Suspect]
     Indication: SLEEP DISORDER
     Dosage: PO
     Route: 048
     Dates: start: 20020320, end: 20020326
  6. NITRAZEPAM TABLETS [Suspect]
     Indication: SLEEP DISORDER
     Dosage: PO
     Route: 048
     Dates: start: 20020409, end: 20020409
  7. NITRAZEPAM TABLETS [Suspect]
     Indication: SLEEP DISORDER
     Dosage: PO
     Route: 048
     Dates: start: 20020314, end: 20020314
  8. FURORESE SOLUTION FOR INJECTION [Suspect]
     Dosage: IV
     Route: 042
     Dates: start: 20020320, end: 20020323
  9. FURORESE SOLUTION FOR INJECTION [Suspect]
     Dosage: IV
     Route: 042
     Dates: start: 20020327, end: 20020413
  10. TRAMAL DROPS [Suspect]
     Indication: PAIN
     Dosage: 15 DROP/DAY PO
     Route: 048
     Dates: start: 20020323, end: 20020323
  11. PCM LIQUID [Suspect]
     Indication: PAIN
     Dosage: PO
     Route: 048
     Dates: start: 20020323, end: 20020323
  12. METOCLOPRAMIDE [Suspect]
     Indication: NAUSEA
     Dosage: IV
     Route: 042
     Dates: start: 20020328, end: 20020328
  13. METOCLOPRAMIDE [Suspect]
     Indication: NAUSEA
     Dosage: IV
     Route: 042
     Dates: start: 20020330, end: 20020330
  14. METOCLOPRAMIDE [Suspect]
     Indication: NAUSEA
     Dosage: IV
     Route: 042
     Dates: start: 20020403, end: 20020407
  15. PREDNISONE [Suspect]
     Indication: SKIN DISORDER
     Dosage: PO
     Route: 048
     Dates: start: 20020409, end: 20020414
  16. PANTOZOL [Suspect]
     Indication: PROPHYLAXIS
     Dosage: 40 MG QPM PO
     Route: 048
     Dates: start: 20020409, end: 20020414
  17. PANTOZOL [Suspect]
     Indication: ULCER
     Dosage: 40 MG QPM PO
     Route: 048
     Dates: start: 20020409, end: 20020414
  18. GENTAMICIN [Concomitant]
  19. CEFOTIAM HYDROCHLORIDE [Concomitant]
  20. TPN [Concomitant]
  21. ORGARAN [Concomitant]
  22. CLONT [Concomitant]
  23. VANCOMYCIN [Concomitant]
  24. MORPHINE SULFATE [Concomitant]
  25. SOLU-DECORTIN H [Concomitant]
  26. ANTRA [Concomitant]
  27. BALDRIAN [Concomitant]
  28. PASPERTIN [Concomitant]
  29. DIMETICON [Concomitant]
  30. MULTIVITAMIN [Concomitant]

REACTIONS (7)
  - DRUG INEFFECTIVE [None]
  - HAEMOGLOBIN DECREASED [None]
  - SEPTIC SHOCK [None]
  - STAPHYLOCOCCAL INFECTION [None]
  - STEVENS-JOHNSON SYNDROME [None]
  - TOXIC EPIDERMAL NECROLYSIS [None]
  - TOXIC SHOCK SYNDROME [None]
